FAERS Safety Report 9403020 (Version 15)
Quarter: 2015Q1

REPORT INFORMATION
  Report Type: Spontaneous
  Country: US (occurrence: US)
  Receive Date: 20130716
  Receipt Date: 20150211
  Transmission Date: 20150721
  Serious: Yes (Life-Threatening, Hospitalization, Other)
  Sender: FDA-Public Use
  Company Number: US-GLAXOSMITHKLINE-A1026922A

PATIENT
  Sex: Female
  Weight: 73.6 kg

DRUGS (32)
  1. FLOLAN [Suspect]
     Active Substance: EPOPROSTENOL SODIUM
     Dosage: 49.7 NG/KG/MIN CONTINUOUS; CONCENTRATION: 75,000 NG/ML; PUMP RATE: 85 ML/DAY; VIAL STRENGTH: 1.5 MG
     Route: 042
     Dates: start: 20060725
  2. WELLBUTRIN [Suspect]
     Active Substance: BUPROPION HYDROCHLORIDE
     Indication: EX-TOBACCO USER
     Route: 065
  3. CHANTIX [Suspect]
     Active Substance: VARENICLINE TARTRATE
     Indication: EX-TOBACCO USER
     Route: 065
  4. BENZONATATE. [Concomitant]
     Active Substance: BENZONATATE
  5. LOPERAMIDE [Concomitant]
     Active Substance: LOPERAMIDE
  6. OXAZEPAM. [Concomitant]
     Active Substance: OXAZEPAM
  7. FLOLAN [Suspect]
     Active Substance: EPOPROSTENOL SODIUM
     Indication: PULMONARY ARTERIAL HYPERTENSION
     Dosage: CONCENTRATION 75,000 NG/ML (VIAL STRENGTH 1.5 MG).46 NG/KG/MIN, CONCENTRATION 75,000 NG/ML, VIA[...]
     Route: 042
     Dates: start: 2000
  8. FLOLAN [Suspect]
     Active Substance: EPOPROSTENOL SODIUM
     Dosage: UNK
     Dates: start: 2000
  9. FLOLAN [Suspect]
     Active Substance: EPOPROSTENOL SODIUM
     Dosage: UNK
     Dates: start: 2000
  10. SPIRONOLACTONE. [Concomitant]
     Active Substance: SPIRONOLACTONE
  11. FLOLAN [Suspect]
     Active Substance: EPOPROSTENOL SODIUM
     Dosage: UNK
     Dates: start: 2000
  12. FLOLAN [Suspect]
     Active Substance: EPOPROSTENOL SODIUM
     Dosage: UNK
     Dates: start: 2000
  13. FLUCONAZOLE. [Concomitant]
     Active Substance: FLUCONAZOLE
  14. FLONASE [Suspect]
     Active Substance: FLUTICASONE PROPIONATE
     Indication: PRODUCT USED FOR UNKNOWN INDICATION
     Route: 045
  15. KLOR-CON [Concomitant]
     Active Substance: POTASSIUM CHLORIDE
  16. FLOLAN [Suspect]
     Active Substance: EPOPROSTENOL SODIUM
     Dosage: UNK
     Dates: start: 2000
  17. SPIRIVA [Suspect]
     Active Substance: TIOTROPIUM BROMIDE MONOHYDRATE
     Indication: PRODUCT USED FOR UNKNOWN INDICATION
     Dosage: 18 UG, QD
     Route: 055
  18. RESTORIL [Concomitant]
     Active Substance: TEMAZEPAM
  19. NORCO [Concomitant]
     Active Substance: ACETAMINOPHEN\HYDROCODONE BITARTRATE
  20. HYDROCORTISONE. [Concomitant]
     Active Substance: HYDROCORTISONE
  21. FLOLAN [Suspect]
     Active Substance: EPOPROSTENOL SODIUM
     Dosage: UNK
     Dates: start: 2000
  22. ADVAIR HFA [Suspect]
     Active Substance: FLUTICASONE PROPIONATE\SALMETEROL XINAFOATE
     Indication: PRODUCT USED FOR UNKNOWN INDICATION
     Dosage: 250/50 MCG
     Route: 055
  23. NEFAZODONE [Concomitant]
     Active Substance: NEFAZODONE
  24. ZYPREXA [Concomitant]
     Active Substance: OLANZAPINE
  25. REVATIO [Suspect]
     Active Substance: SILDENAFIL CITRATE
     Indication: PRODUCT USED FOR UNKNOWN INDICATION
     Route: 065
  26. PROVENTIL HFA [Concomitant]
     Active Substance: ALBUTEROL SULFATE
  27. REQUIP [Concomitant]
     Active Substance: ROPINIROLE HYDROCHLORIDE
  28. LEXAPRO [Concomitant]
     Active Substance: ESCITALOPRAM OXALATE
  29. FERROUS SULFATE [Concomitant]
     Active Substance: FERROUS SULFATE\FERROUS SULFATE, DRIED
  30. ALBUTEROL. [Concomitant]
     Active Substance: ALBUTEROL
  31. FLOLAN [Suspect]
     Active Substance: EPOPROSTENOL SODIUM
     Dosage: UNK
     Dates: start: 2000
  32. LASIX [Concomitant]
     Active Substance: FUROSEMIDE

REACTIONS (46)
  - Chronic obstructive pulmonary disease [Not Recovered/Not Resolved]
  - Haemoglobin decreased [Recovered/Resolved]
  - Increased tendency to bruise [Unknown]
  - Spinal cord infection [Unknown]
  - Adrenal insufficiency [Not Recovered/Not Resolved]
  - Weight decreased [Unknown]
  - Malaise [Unknown]
  - Fatigue [Recovering/Resolving]
  - Tachyarrhythmia [Unknown]
  - Tobacco abuse [Not Recovered/Not Resolved]
  - Cough [Unknown]
  - Transfusion [Unknown]
  - Infection [Unknown]
  - Dyspnoea [Not Recovered/Not Resolved]
  - Overweight [Not Recovered/Not Resolved]
  - Orthopnoea [Not Recovered/Not Resolved]
  - Palmar erythema [Unknown]
  - Antiphospholipid antibodies [Unknown]
  - Hypotension [Recovered/Resolved]
  - Device malfunction [Unknown]
  - Therapeutic embolisation [Unknown]
  - Hypoxia [Not Recovered/Not Resolved]
  - Back pain [Not Recovered/Not Resolved]
  - Drug intolerance [Unknown]
  - Dermatitis contact [Not Recovered/Not Resolved]
  - Dizziness [Unknown]
  - Steroid therapy [Unknown]
  - Plasma cell myeloma [Unknown]
  - Pulmonary haemorrhage [Unknown]
  - Haemoptysis [Unknown]
  - Deep vein thrombosis [Unknown]
  - Haematoma evacuation [Unknown]
  - Supraventricular tachycardia [Recovered/Resolved]
  - Adverse drug reaction [Unknown]
  - Feeling abnormal [Unknown]
  - Central venous catheterisation [Unknown]
  - Depression [Not Recovered/Not Resolved]
  - Nausea [Not Recovered/Not Resolved]
  - Exercise test abnormal [Unknown]
  - Underdose [Unknown]
  - Neoplasm malignant [Unknown]
  - Cholecystectomy [Unknown]
  - Intervertebral disc protrusion [Not Recovered/Not Resolved]
  - Migraine [Unknown]
  - Fibula fracture [Unknown]
  - Pulmonary arterial pressure increased [Unknown]

NARRATIVE: CASE EVENT DATE: 2004
